FAERS Safety Report 16449371 (Version 2)
Quarter: 2019Q3

REPORT INFORMATION
  Report Type: Report from Study
  Country: None (occurrence: CA)
  Receive Date: 20190619
  Receipt Date: 20190708
  Transmission Date: 20191004
  Serious: Yes (Death)
  Sender: FDA-Public Use
  Company Number: CA-ABBVIE-19S-028-2732743-00

PATIENT
  Sex: Male
  Weight: 71.73 kg

DRUGS (2)
  1. LUPRON DEPOT [Suspect]
     Active Substance: LEUPROLIDE ACETATE
     Indication: PROSTATE CANCER
     Route: 030
     Dates: start: 20180413
  2. GLYBURIDE. [Concomitant]
     Active Substance: GLYBURIDE
     Indication: PRODUCT USED FOR UNKNOWN INDICATION

REACTIONS (3)
  - Urinary hesitation [Not Recovered/Not Resolved]
  - Prostate cancer metastatic [Fatal]
  - Bradykinesia [Not Recovered/Not Resolved]
